FAERS Safety Report 7486512-5 (Version None)
Quarter: 2011Q2

REPORT INFORMATION
  Report Type: 
  Country: None (occurrence: None)
  Receive Date: 20110517
  Receipt Date: 20110505
  Transmission Date: 20111010
  Serious: Yes (Hospitalization, Other)
  Sender: FDA-Public Use
  Company Number: US-UCBSA-021475

PATIENT
  Sex: Male
  Weight: 79.83 kg

DRUGS (7)
  1. CIMZIA [Suspect]
     Route: 058
  2. HIGH BLOOD PRESSURE MEDICATION [Concomitant]
  3. FERROUS SULFATE TAB [Concomitant]
     Indication: IRON DEFICIENCY
     Route: 048
  4. HYOSCYAMINE [Concomitant]
  5. PREDNISONE [Concomitant]
  6. CIMZIA [Suspect]
     Indication: CROHN'S DISEASE
     Route: 058
     Dates: start: 20100501
  7. ENTOCORT EC [Concomitant]
     Dosage: THREE PILLS PER DAY EVERY MORNING

REACTIONS (12)
  - DIARRHOEA [None]
  - INSOMNIA [None]
  - PENILE PAIN [None]
  - ONCOLOGIC COMPLICATION [None]
  - ASTHENIA [None]
  - WEIGHT DECREASED [None]
  - ABDOMINAL PAIN [None]
  - PROCEDURAL PAIN [None]
  - MUSCULOSKELETAL STIFFNESS [None]
  - POOR QUALITY SLEEP [None]
  - ABDOMINAL PAIN UPPER [None]
  - FREQUENT BOWEL MOVEMENTS [None]
